FAERS Safety Report 7273698-0 (Version None)
Quarter: 2011Q1

REPORT INFORMATION
  Report Type: 
  Country: None (occurrence: None)
  Receive Date: 20110203
  Receipt Date: 20110125
  Transmission Date: 20110831
  Serious: Yes (Hospitalization)
  Sender: FDA-Public Use
  Company Number: DE-BAXTER-2011BH001460

PATIENT
  Age: 68 Year
  Sex: Female
  Weight: 55 kg

DRUGS (4)
  1. TPN ELECTROLYTES IN PLASTIC CONTAINER [Suspect]
     Indication: SHORT-BOWEL SYNDROME
     Route: 042
     Dates: start: 20110112, end: 20110113
  2. CERNEVIT-12 [Suspect]
     Indication: SHORT-BOWEL SYNDROME
     Route: 042
     Dates: start: 20110112, end: 20110113
  3. POTASSIUM CHLORIDE IN PLASTIC CONTAINER [Suspect]
     Indication: SHORT-BOWEL SYNDROME
     Route: 042
     Dates: start: 20110112, end: 20110113
  4. OLIMEL [Suspect]
     Indication: SHORT-BOWEL SYNDROME
     Route: 042
     Dates: start: 20110112, end: 20110113

REACTIONS (5)
  - EXTRAVASATION [None]
  - SKIN TIGHTNESS [None]
  - ERYTHEMA [None]
  - PAIN [None]
  - LOCAL SWELLING [None]
